FAERS Safety Report 24446788 (Version 2)
Quarter: 2024Q4

REPORT INFORMATION
  Report Type: Spontaneous
  Country: IN (occurrence: IN)
  Receive Date: 20241016
  Receipt Date: 20241019
  Transmission Date: 20250114
  Serious: Yes (Hospitalization, Other)
  Sender: SANOFI AVENTIS
  Company Number: IN-MLMSERVICE-20240924-PI206110-00090-1

PATIENT
  Age: 42 Year
  Sex: Female
  Weight: 60 kg

DRUGS (10)
  1. LEFLUNOMIDE [Suspect]
     Active Substance: LEFLUNOMIDE
     Indication: Plantar fasciitis
     Dosage: 20 MG, QD
  2. CEFUROXIME [Suspect]
     Active Substance: CEFUROXIME
     Dosage: 500 MG, BID
     Route: 048
  3. ARGININE [Concomitant]
     Active Substance: ARGININE
     Indication: Plantar fasciitis
     Dosage: FIXED-DOSE COMBINATION L-ARGININE, COLLAGEN, CHONDROITIN SULPHATE, VITAMINC, AND SODIUM HYALURONATE
  4. COLLAGEN [Concomitant]
     Active Substance: COLLAGEN
     Indication: Plantar fasciitis
     Dosage: FIXED-DOSE COMBINATION L-ARGININE, COLLAGEN, CHONDROITIN SULPHATE, VITAMINC, AND SODIUM HYALURONATE
  5. SODIUM CHONDROITIN SULFATE [Concomitant]
     Active Substance: SODIUM CHONDROITIN SULFATE
     Indication: Plantar fasciitis
     Dosage: FIXED-DOSE COMBINATION L-ARGININE, COLLAGEN, CHONDROITIN SULPHATE, VITAMINC, AND SODIUM HYALURONATE
  6. VITAMIN C [Concomitant]
     Active Substance: ASCORBIC ACID
     Indication: Plantar fasciitis
     Dosage: FIXED-DOSE COMBINATION L-ARGININE, COLLAGEN, CHONDROITIN SULPHATE, VITAMINC, AND SODIUM HYALURONATE
  7. SODIUM HYALURONATE [Concomitant]
     Active Substance: HYALURONATE SODIUM
     Indication: Plantar fasciitis
     Dosage: FIXED-DOSE COMBINATION L-ARGININE, COLLAGEN, CHONDROITIN SULPHATE, VITAMINC, AND SODIUM HYALURONATE
  8. ETORICOXIB [Concomitant]
     Active Substance: ETORICOXIB
     Indication: Plantar fasciitis
     Dosage: 90 MG
  9. METHYLPREDNISOLONE [Concomitant]
     Active Substance: METHYLPREDNISOLONE
     Indication: Plantar fasciitis
     Dosage: UNK
  10. DOMPERIDONE;RANITIDINE [Concomitant]
     Indication: Plantar fasciitis
     Dosage: UNK

REACTIONS (28)
  - Drug reaction with eosinophilia and systemic symptoms [Recovered/Resolved]
  - Pyrexia [Recovered/Resolved]
  - Decreased appetite [Recovered/Resolved]
  - Chills [Recovered/Resolved]
  - Nausea [Recovered/Resolved]
  - Dizziness [Recovered/Resolved]
  - Rash maculo-papular [Recovered/Resolved]
  - Pruritus [Recovered/Resolved]
  - Rash erythematous [Recovered/Resolved]
  - Skin lesion [Recovered/Resolved]
  - Lip erythema [Recovered/Resolved]
  - Oral disorder [Recovered/Resolved]
  - Face oedema [Recovered/Resolved]
  - Hepatosplenomegaly [Recovered/Resolved]
  - Lymphadenopathy [Recovered/Resolved]
  - Skin hyperplasia [Recovered/Resolved]
  - Eczema [Recovered/Resolved]
  - Parakeratosis [Recovered/Resolved]
  - Lymphocytic infiltration [Recovered/Resolved]
  - Pallor [Recovered/Resolved]
  - Rash [Recovered/Resolved]
  - Skin exfoliation [Recovered/Resolved]
  - Eosinophilia [Recovered/Resolved]
  - Diarrhoea [Recovered/Resolved]
  - Drug-induced liver injury [Recovered/Resolved]
  - Liver injury [Recovered/Resolved]
  - Abdominal tenderness [Recovered/Resolved]
  - Abdominal pain [Recovered/Resolved]
